FAERS Safety Report 16960475 (Version 1)
Quarter: 2019Q4

REPORT INFORMATION
  Report Type: Spontaneous
  Country: IN (occurrence: IN)
  Receive Date: 20191025
  Receipt Date: 20191025
  Transmission Date: 20200122
  Serious: Yes (Other)
  Sender: FDA-Public Use
  Company Number: IN-ALEMBIC PHARMACUETICALS LIMITED-2019SCAL000810

PATIENT

DRUGS (2)
  1. DIVALPROEX SODIUM. [Concomitant]
     Active Substance: DIVALPROEX SODIUM
     Indication: PSYCHOTIC SYMPTOM
     Dosage: 1000 MILLIGRAM, IN TWO DIVIDED DOSES
  2. QUETIAPINE FUMARATE. [Suspect]
     Active Substance: QUETIAPINE FUMARATE
     Indication: PSYCHOTIC SYMPTOM
     Dosage: 600 MILLIGRAM, IN TWO DIVIDED DOSES

REACTIONS (5)
  - Rash maculo-papular [Recovered/Resolved]
  - Hypersensitivity vasculitis [Recovered/Resolved]
  - Skin lesion [Recovered/Resolved]
  - Red blood cell sedimentation rate increased [Unknown]
  - Leukocytosis [Unknown]
